FAERS Safety Report 4729981-3 (Version None)
Quarter: 2005Q3

REPORT INFORMATION
  Report Type: 
  Country: None (occurrence: None)
  Receive Date: 20050725
  Receipt Date: 20050713
  Transmission Date: 20060218
  Serious: Yes (Death, Hospitalization)
  Sender: FDA-Public Use
  Company Number: SAGL-ZLV/05/67/UNK

PATIENT
  Age: 33 Year
  Sex: Female
  Weight: 42 kg

DRUGS (9)
  1. SANDOGLOBULIN [Suspect]
     Indication: MYASTHENIA GRAVIS
     Dosage: 18 G IV
     Route: 042
     Dates: start: 20050503
  2. PHOTOSTIGMINE(PHYSOSTIGMINE) [Concomitant]
  3. FOSAMAX [Concomitant]
  4. LANSOPRAZOLE [Concomitant]
  5. PREDNSIOLONE (PREDNISOLONE) [Concomitant]
  6. SYMBICORT INHALER (ANTI-ASTHMATICS) [Concomitant]
  7. GELOFUSIN (PLASMA SUBSTITUTES AND PERFUSION SOLUTIONS) [Concomitant]
  8. CEFTRIAXONE [Concomitant]
  9. CYCLIZINE (CYCLIZINE) [Concomitant]

REACTIONS (9)
  - ARRHYTHMIA [None]
  - BLOOD PRESSURE ABNORMAL [None]
  - CARDIAC OUTPUT DECREASED [None]
  - DIZZINESS [None]
  - FATIGUE [None]
  - INFECTION [None]
  - MALAISE [None]
  - URINE OUTPUT DECREASED [None]
  - VENTRICULAR TACHYCARDIA [None]
